FAERS Safety Report 24929287 (Version 1)
Quarter: 2025Q1

REPORT INFORMATION
  Report Type: Spontaneous
  Country: GB (occurrence: GB)
  Receive Date: 20250205
  Receipt Date: 20250205
  Transmission Date: 20250408
  Serious: Yes (Hospitalization)
  Sender: VERTEX
  Company Number: GB-VERTEX PHARMACEUTICALS-2025-001687

PATIENT
  Sex: Male

DRUGS (6)
  1. ELEXACAFTOR\IVACAFTOR\TEZACAFTOR [Suspect]
     Active Substance: ELEXACAFTOR\IVACAFTOR\TEZACAFTOR
     Indication: Cystic fibrosis
     Dosage: IVA 75 MG/ TEZA 50 MG/ ELEXA 100 MG; ONE SACHET IN AM
     Route: 048
     Dates: start: 2024
  2. KALYDECO [Suspect]
     Active Substance: IVACAFTOR
     Indication: Cystic fibrosis
     Route: 048
     Dates: start: 2024
  3. AMOXICILLIN [Concomitant]
     Active Substance: AMOXICILLIN
  4. ACETAMINOPHEN\ASCORBIC ACID [Concomitant]
     Active Substance: ACETAMINOPHEN\ASCORBIC ACID
  5. OMEPRAZOLE [Concomitant]
     Active Substance: OMEPRAZOLE
  6. CIPROFLOXACIN [Concomitant]
     Active Substance: CIPROFLOXACIN

REACTIONS (2)
  - Pseudomonas infection [Not Recovered/Not Resolved]
  - Tonsillitis [Not Recovered/Not Resolved]
